FAERS Safety Report 20029176 (Version 1)
Quarter: 2021Q4

REPORT INFORMATION
  Report Type: Spontaneous
  Country: FR (occurrence: FR)
  Receive Date: 20211103
  Receipt Date: 20211103
  Transmission Date: 20220303
  Serious: Yes (Death, Hospitalization, Other)
  Sender: FDA-Public Use
  Company Number: FR-NOVARTISPH-NVSC2021FR250393

PATIENT
  Age: 61 Year
  Sex: Male

DRUGS (3)
  1. CYCLOSPORINE [Suspect]
     Active Substance: CYCLOSPORINE
     Indication: Immunosuppression
     Dosage: 220 MG (220 MGX2)
     Route: 042
     Dates: start: 20210805
  2. NOREPINEPHRINE [Suspect]
     Active Substance: NOREPINEPHRINE
     Indication: Shock
     Dosage: UNK (IVSE ROUTE)
     Route: 065
     Dates: start: 20210803
  3. CAPLACIZUMAB [Suspect]
     Active Substance: CAPLACIZUMAB
     Indication: Thrombotic thrombocytopenic purpura
     Dosage: 10 MG (LYOPHILISATE)
     Route: 042
     Dates: start: 20210928

REACTIONS (3)
  - Septic shock [Fatal]
  - Serratia infection [Fatal]
  - Lung disorder [Fatal]

NARRATIVE: CASE EVENT DATE: 20210901
